FAERS Safety Report 4989943-8 (Version None)
Quarter: 2006Q2

REPORT INFORMATION
  Report Type: 
  Country: None (occurrence: None)
  Receive Date: 20060427
  Receipt Date: 20060407
  Transmission Date: 20061013
  Serious: Yes (Hospitalization)
  Sender: FDA-Public Use
  Company Number: 224102

PATIENT
  Age: 62 Year
  Sex: Male
  Weight: 67 kg

DRUGS (13)
  1. BEVACIZUMAB OR PLACEBO (BEVACIZUMB) PWDR + SOLVENT, NFUSION SOLN, 100 [Suspect]
     Indication: NON-SMALL CELL LUNG CANCER
     Dosage: 15 MG/KG, Q3W, INTRAVENOUS
     Route: 042
     Dates: start: 20060109
  2. BEVACIZUMAB OR PLACEBO (BEVACIZUMB) PWDR + SOLVENT, NFUSION SOLN, 100 [Suspect]
  3. BEVACIZUMAB OR PLACEBO (BEVACIZUMB) PWDR + SOLVENT, NFUSION SOLN, 100 [Suspect]
  4. BEVACIZUMAB OR PLACEBO (BEVACIZUMB) PWDR + SOLVENT, NFUSION SOLN, 100 [Suspect]
  5. BEVACIZUMAB OR PLACEBO (BEVACIZUMB) PWDR + SOLVENT, NFUSION SOLN, 100 [Suspect]
  6. BEVACIZUMAB OR PLACEBO (BEVACIZUMB) PWDR + SOLVENT, NFUSION SOLN, 100 [Suspect]
  7. CISPLATIN [Suspect]
     Indication: NON-SMALL CELL LUNG CANCER
     Dosage: 80 MG/M2, Q3W, INTRAVENOUS
     Route: 042
     Dates: start: 20060109
  8. GEMCTIABINE (GEMCITABINE HYDROCHLORIDE) [Suspect]
     Indication: NON-SMALL CELL LUNG CANCER
     Dosage: 1250 MG/M2, INTRAVENOUS
     Route: 042
     Dates: start: 20060109
  9. OXYCODONE (OXYCODONE) [Concomitant]
  10. METHYLPREDNISOLONE [Concomitant]
  11. ONDANSETRON [Concomitant]
  12. EMEND [Concomitant]
  13. NEURONTIN [Concomitant]

REACTIONS (2)
  - OSTEONECROSIS [None]
  - SPINAL DISORDER [None]
